FAERS Safety Report 6289066-4 (Version None)
Quarter: 2009Q3

REPORT INFORMATION
  Report Type: 
  Country: None (occurrence: None)
  Receive Date: 20090728
  Receipt Date: 20090717
  Transmission Date: 20100115
  Serious: Yes (Other)
  Sender: FDA-Public Use
  Company Number: ZYD-09-AE-02-48

PATIENT
  Age: 57 Year
  Sex: Male

DRUGS (4)
  1. RIBAVIRIN [Suspect]
     Indication: HEPATITIS C
     Dosage: 600-1000MG, DIVIDED
     Dates: start: 20081003
  2. PEG-INTRON [Suspect]
     Indication: HEPATITIS C
     Dosage: 180MCG, WEEKLY
     Dates: start: 20081003
  3. LEXAPRO [Concomitant]
  4. PROCRIT [Concomitant]

REACTIONS (7)
  - DYSPNOEA [None]
  - EPICONDYLITIS [None]
  - FATIGUE [None]
  - INFECTION [None]
  - PAIN IN EXTREMITY [None]
  - THROMBOSIS [None]
  - VEIN DISORDER [None]
